FAERS Safety Report 4870379-5 (Version None)
Quarter: 2006Q1

REPORT INFORMATION
  Report Type: 
  Country: None (occurrence: None)
  Receive Date: 20060103
  Receipt Date: 20051207
  Transmission Date: 20060701
  Serious: Yes (Hospitalization)
  Sender: FDA-Public Use
  Company Number: IN-NOVOPROD-249275

PATIENT
  Age: 60 Year
  Sex: Female
  Weight: 70 kg

DRUGS (14)
  1. HUMAN MIXTARD 30 [Suspect]
     Indication: DIABETES MELLITUS
     Dosage: 30 U, UNK
     Dates: end: 20051119
  2. DILTIAZEM HCL [Concomitant]
     Dosage: 1-0-1
     Route: 048
  3. ARKAMIN [Concomitant]
     Dosage: 1-1-1
     Route: 048
  4. APRESOLINE [Concomitant]
     Dosage: 1-1-1
  5. LASIX [Concomitant]
     Dosage: 1-0-1
  6. BUDECORT ^ASTRA^ [Concomitant]
  7. CLEXANE [Concomitant]
     Dosage: .6 ML, UNK
     Route: 058
  8. ATORVASTATIN [Concomitant]
     Dosage: 0-0-1
  9. PANTOPRAZOLE [Concomitant]
     Dosage: 1-0-0
  10. DOMSTAL [Concomitant]
     Dosage: 1-1-1
  11. VASYLOX [Concomitant]
  12. NITRAZEPAM [Concomitant]
     Dosage: 10 MG, UNK
  13. AMARYL [Concomitant]
     Dosage: 1-1-0
  14. PRAZOSIN [Concomitant]

REACTIONS (3)
  - BLOOD GLUCOSE INCREASED [None]
  - CARDIAC FAILURE ACUTE [None]
  - DRUG INEFFECTIVE [None]
